FAERS Safety Report 8087735-7 (Version None)
Quarter: 2012Q1

REPORT INFORMATION
  Report Type: 
  Country: None (occurrence: None)
  Receive Date: 20120128
  Receipt Date: 20110526
  Transmission Date: 20120608
  Serious: No
  Sender: FDA-Public Use
  Company Number: US-ABBOTT-11P-163-0728766-00

PATIENT
  Age: 56 Year
  Sex: Female

DRUGS (5)
  1. VITAMIN D [Concomitant]
     Indication: VITAMIN D DEFICIENCY
     Dosage: SIX DAYS A WEEK;MON-SAT INCLUSIVE
  2. HUMIRA [Suspect]
     Indication: PSORIASIS
     Dates: start: 20110430
  3. METHOTREXATE [Concomitant]
     Indication: PSORIASIS
     Dosage: 10 MG EVERY SUNDAY
  4. FOLIC ACID [Concomitant]
     Indication: FOLATE DEFICIENCY
     Dosage: SIX DAYS A WEEK;MON-SAT INCLUSIVE
  5. COD LIVER OIL [Concomitant]
     Indication: VITAMIN SUPPLEMENTATION
     Dosage: SIX DAYS A WEEK;MON-SAT INCLUSIVE

REACTIONS (3)
  - UPPER RESPIRATORY TRACT CONGESTION [None]
  - PSORIASIS [None]
  - SINUSITIS [None]
